FAERS Safety Report 12432641 (Version 1)
Quarter: 2016Q2

REPORT INFORMATION
  Report Type: Spontaneous
  Country: US (occurrence: US)
  Receive Date: 20160603
  Receipt Date: 20160603
  Transmission Date: 20160815
  Serious: Yes (Other)
  Sender: FDA-Public Use
  Company Number: US-NOVOPROD-494723

PATIENT
  Age: 76 Year
  Sex: Female

DRUGS (1)
  1. LEVEMIR [Suspect]
     Active Substance: INSULIN DETEMIR
     Indication: TYPE 2 DIABETES MELLITUS
     Dosage: 29 U, UNK
     Route: 058
     Dates: start: 2009

REACTIONS (2)
  - Macular degeneration [Not Recovered/Not Resolved]
  - Blindness unilateral [Not Recovered/Not Resolved]
